FAERS Safety Report 8580152 (Version 2)
Quarter: 2013Q1

REPORT INFORMATION
  Report Type: Report from Study
  Country: JP (occurrence: JP)
  Receive Date: 20120525
  Receipt Date: 20130312
  Transmission Date: 20140127
  Serious: Yes (Life-Threatening, Hospitalization, Other)
  Sender: FDA-Public Use
  Company Number: JP-CELGENEUS-087-50794-12052915

PATIENT
  Age: 53 Year
  Sex: Male
  Weight: 75 kg

DRUGS (35)
  1. VIDAZA [Suspect]
     Indication: MYELODYSPLASTIC SYNDROME
     Dosage: 75 MILLIGRAM/SQ. METER
     Route: 041
     Dates: start: 20111013, end: 20111019
  2. VIDAZA [Suspect]
     Dosage: 37.5 MILLIGRAM/SQ. METER
     Route: 058
     Dates: start: 20120105, end: 20120116
  3. VIDAZA [Suspect]
     Dosage: 20 MILLIGRAM/SQ. METER
     Route: 058
     Dates: start: 20120410, end: 20120413
  4. VIDAZA [Suspect]
     Dosage: 20 MILLIGRAM/SQ. METER
     Route: 058
     Dates: start: 20120416, end: 20120418
  5. VIDAZA [Suspect]
     Dosage: 20 MILLIGRAM/SQ. METER
     Route: 058
     Dates: start: 20120522, end: 20120523
  6. VIDAZA [Suspect]
     Dosage: 20 MILLIGRAM/SQ. METER
     Route: 058
     Dates: start: 20120525, end: 20120525
  7. VIDAZA [Suspect]
     Dosage: 20 MILLIGRAM/SQ. METER
     Route: 058
     Dates: start: 20120528, end: 20120531
  8. VIDAZA [Suspect]
     Dosage: 20 MILLIGRAM/SQ. METER
     Route: 058
     Dates: start: 20120704, end: 20120706
  9. VIDAZA [Suspect]
     Dosage: 20 MILLIGRAM/SQ. METER
     Route: 058
     Dates: start: 20120709, end: 20120712
  10. VIDAZA [Suspect]
     Dosage: 20 MILLIGRAM/SQ. METER
     Route: 058
     Dates: start: 20121106, end: 20121109
  11. VIDAZA [Suspect]
     Dosage: 20 MILLIGRAM/SQ. METER
     Route: 058
     Dates: start: 20121112, end: 20121114
  12. BAKTAR [Suspect]
     Indication: PRODUCT USED FOR UNKNOWN INDICATION
     Route: 048
     Dates: start: 20111013, end: 20111111
  13. NASEA-OD [Concomitant]
     Indication: PRODUCT USED FOR UNKNOWN INDICATION
     Route: 065
     Dates: start: 20111013, end: 20111017
  14. NASEA-OD [Concomitant]
     Route: 065
     Dates: end: 20111017
  15. OXYGEN [Concomitant]
     Indication: PRODUCT USED FOR UNKNOWN INDICATION
     Route: 055
  16. CONIEL [Concomitant]
     Indication: PRODUCT USED FOR UNKNOWN INDICATION
     Route: 065
     Dates: end: 20120805
  17. URALYT [Concomitant]
     Indication: PRODUCT USED FOR UNKNOWN INDICATION
     Route: 065
  18. URINORM [Concomitant]
     Indication: PRODUCT USED FOR UNKNOWN INDICATION
     Route: 065
  19. ITRIZOLE [Concomitant]
     Indication: PRODUCT USED FOR UNKNOWN INDICATION
     Route: 065
     Dates: start: 20111013, end: 20121126
  20. CALONAL [Concomitant]
     Indication: PRODUCT USED FOR UNKNOWN INDICATION
     Route: 065
     Dates: start: 20111013, end: 20111013
  21. NEU-UP [Concomitant]
     Indication: PRODUCT USED FOR UNKNOWN INDICATION
     Route: 065
     Dates: start: 20111108, end: 20111109
  22. LASIX [Concomitant]
     Indication: PRODUCT USED FOR UNKNOWN INDICATION
     Route: 065
  23. SIGMART [Concomitant]
     Indication: PRODUCT USED FOR UNKNOWN INDICATION
     Route: 065
  24. BENAMBAX [Concomitant]
     Indication: PRODUCT USED FOR UNKNOWN INDICATION
     Route: 065
  25. GENINAX [Concomitant]
     Indication: PRODUCT USED FOR UNKNOWN INDICATION
     Route: 065
     Dates: start: 20120612, end: 20120616
  26. SULBACILLIN [Concomitant]
     Indication: PRODUCT USED FOR UNKNOWN INDICATION
     Route: 065
     Dates: start: 20120613, end: 20120616
  27. SULBACILLIN [Concomitant]
     Route: 065
     Dates: start: 20120722, end: 20120726
  28. SUPELZON [Concomitant]
     Indication: PRODUCT USED FOR UNKNOWN INDICATION
     Route: 065
     Dates: start: 20120719, end: 20120720
  29. VANCOMYCIN [Concomitant]
     Indication: PRODUCT USED FOR UNKNOWN INDICATION
     Route: 065
     Dates: start: 20120802, end: 20120805
  30. VANCOMYCIN [Concomitant]
     Route: 065
     Dates: start: 20120809, end: 20120822
  31. MINOCYCLINE HYDROCHLORIDE [Concomitant]
     Indication: PRODUCT USED FOR UNKNOWN INDICATION
     Route: 065
     Dates: start: 20120803, end: 20120816
  32. CIPROXAN [Concomitant]
     Indication: PRODUCT USED FOR UNKNOWN INDICATION
     Route: 065
     Dates: start: 20120814, end: 20120827
  33. AZACTAM [Concomitant]
     Indication: PRODUCT USED FOR UNKNOWN INDICATION
     Route: 065
     Dates: start: 20120814, end: 20120824
  34. GASTER [Concomitant]
     Indication: PRODUCT USED FOR UNKNOWN INDICATION
     Route: 065
     Dates: start: 20120806, end: 20120816
  35. VICCLOX [Concomitant]
     Indication: PRODUCT USED FOR UNKNOWN INDICATION
     Route: 065
     Dates: start: 20120910, end: 20120924

REACTIONS (6)
  - Pneumonia [Recovered/Resolved]
  - White blood cell count decreased [Recovered/Resolved]
  - Anaemia [Recovered/Resolved]
  - Platelet count decreased [Recovered/Resolved]
  - White blood cell count decreased [Recovered/Resolved]
  - Pneumonia [Unknown]
